FAERS Safety Report 18099620 (Version 1)
Quarter: 2020Q3

REPORT INFORMATION
  Report Type: Other
  Country: US (occurrence: US)
  Receive Date: 20200731
  Receipt Date: 20200731
  Transmission Date: 20201103
  Serious: Yes (Other)
  Sender: FDA-Public Use
  Company Number: US-ROCHE-2650493

PATIENT
  Sex: Female

DRUGS (8)
  1. XOLAIR [Suspect]
     Active Substance: OMALIZUMAB
     Indication: ASTHMA
  2. XOLAIR [Suspect]
     Active Substance: OMALIZUMAB
     Indication: ASTHMA
     Dosage: INJECT 225MG SUBCUTANEOUSLY EVERY 2 WEEK(S)
     Route: 058
  3. XOLAIR [Suspect]
     Active Substance: OMALIZUMAB
  4. PANTOPRAZOLE [Concomitant]
     Active Substance: PANTOPRAZOLE
  5. FAMOTIDINE. [Concomitant]
     Active Substance: FAMOTIDINE
  6. XOLAIR [Suspect]
     Active Substance: OMALIZUMAB
  7. XOLAIR [Suspect]
     Active Substance: OMALIZUMAB
  8. XOLAIR [Suspect]
     Active Substance: OMALIZUMAB

REACTIONS (1)
  - Renal impairment [Unknown]
